FAERS Safety Report 6801588-3 (Version None)
Quarter: 2010Q2

REPORT INFORMATION
  Report Type: 
  Country: None (occurrence: None)
  Receive Date: 20100629
  Receipt Date: 20100614
  Transmission Date: 20101027
  Serious: Yes (Hospitalization, Other)
  Sender: FDA-Public Use
  Company Number: US-BAYER-200928784NA

PATIENT
  Age: 19 Year
  Sex: Female
  Weight: 79 kg

DRUGS (14)
  1. YASMIN [Suspect]
     Indication: CONTRACEPTION
     Route: 048
     Dates: start: 20060401, end: 20080301
  2. YAZ [Suspect]
     Indication: CONTRACEPTION
     Route: 048
     Dates: start: 20080401, end: 20090401
  3. CEPHALEXIN [Concomitant]
     Dates: start: 20080201
  4. CIPROFLOXACIN [Concomitant]
     Dates: start: 20081201
  5. AMOXICILLIN AND CLAVULANATE POTASSIUM [Concomitant]
     Dates: start: 20080901
  6. MOTRIN [Concomitant]
  7. IBUPROFEN [Concomitant]
     Dates: start: 20090201
  8. EFFEXOR [Concomitant]
     Indication: DEPRESSION
     Dates: start: 20040101
  9. GARDASIL (HPV) VACCINE [Concomitant]
     Dates: start: 20070706, end: 20070706
  10. BACTROBAN [Concomitant]
     Dates: start: 20080201
  11. OXYCODONE HCL [Concomitant]
     Dates: start: 20090101
  12. PROMETHAZINE W/ CODEINE [Concomitant]
     Dates: start: 20081201
  13. NAPROXEN [Concomitant]
     Dates: start: 20090201
  14. LEVAQUIN [Concomitant]
     Dates: start: 20081001

REACTIONS (6)
  - ABDOMINAL PAIN [None]
  - CHOLECYSTITIS CHRONIC [None]
  - CHOLELITHIASIS [None]
  - GALLBLADDER DISORDER [None]
  - GALLBLADDER PAIN [None]
  - POLYCYSTIC OVARIES [None]
